FAERS Safety Report 5359627-5 (Version None)
Quarter: 2007Q2

REPORT INFORMATION
  Report Type: 
  Country: None (occurrence: None)
  Receive Date: 20070530
  Receipt Date: 20061019
  Transmission Date: 20071010
  Serious: Yes (Hospitalization, Other)
  Sender: FDA-Public Use
  Company Number: US200606001774

PATIENT
  Age: 45 Year
  Sex: Male
  Weight: 86.2 kg

DRUGS (5)
  1. ZYPREXA [Suspect]
     Indication: DEPRESSION
     Dosage: 10 MG
     Dates: start: 20030601, end: 20040201
  2. SERTRALINE [Concomitant]
  3. LEXAPRO /USA/ (ESCITALOPRAM) [Concomitant]
  4. METOPROLOL TARTRATE [Concomitant]
  5. LOTREL [Concomitant]

REACTIONS (6)
  - COMA [None]
  - DIABETES MELLITUS [None]
  - DIABETIC COMA [None]
  - HYPERTENSION [None]
  - METABOLIC DISORDER [None]
  - PANCREATITIS [None]
